FAERS Safety Report 11058644 (Version 1)
Quarter: 2015Q2

REPORT INFORMATION
  Report Type: Spontaneous
  Country: US (occurrence: None)
  Receive Date: 20150422
  Receipt Date: 20150422
  Transmission Date: 20150821
  Serious: Yes (Disabling)
  Sender: FDA-Public Use
  Company Number: None

PATIENT
  Age: 65 Year
  Sex: Male
  Weight: 108.86 kg

DRUGS (11)
  1. VIT. D3 [Concomitant]
  2. ASPRIN [Concomitant]
     Active Substance: ASPIRIN
  3. VITAMIN [Concomitant]
     Active Substance: VITAMINS
  4. BYSTOLK [Concomitant]
  5. LEVEMIRE [Concomitant]
  6. VALSARTAN-HCTZ (DIOVAN) [Concomitant]
  7. VICTOAZA [Concomitant]
  8. AMIODIPINE-ATNRAVASTATIN (CADUET) [Concomitant]
  9. INVOKANA [Suspect]
     Active Substance: CANAGLIFLOZIN
     Indication: DIABETES MELLITUS
     Dosage: 1 PILL ONCE DAILY TAKEN BY MOUTH
     Route: 048
  10. POTASSIUM [Concomitant]
     Active Substance: POTASSIUM
  11. METFORMIN [Concomitant]
     Active Substance: METFORMIN HYDROCHLORIDE

REACTIONS (1)
  - Nephropathy [None]

NARRATIVE: CASE EVENT DATE: 20150211
